FAERS Safety Report 8854095 (Version 1)
Quarter: 2012Q4

REPORT INFORMATION
  Report Type: Spontaneous
  Country: US (occurrence: None)
  Receive Date: 20121019
  Receipt Date: 20121019
  Transmission Date: 20130627
  Serious: Yes (Life-Threatening, Hospitalization)
  Sender: FDA-Public Use
  Company Number: None

PATIENT
  Age: 85 Year
  Sex: Male
  Weight: 76.4 kg

DRUGS (14)
  1. LISINOPRIL [Suspect]
     Indication: HYPERTENSION
     Route: 048
     Dates: start: 201005, end: 20120922
  2. A+D WITH COLD LIVCER OIL OINTMENT [Concomitant]
  3. ACTONEL [Concomitant]
  4. ACTOPLUS MET [Concomitant]
  5. ASPIRIN ENTERIC COATED [Concomitant]
  6. BETAMETHASONE-CLOTRIMAZOLE [Concomitant]
  7. CLONIDINE HYDROCHLORIDE [Concomitant]
  8. COMBIGAN [Concomitant]
  9. DORZOLAMIDE HYDROCHLORIDE 2% SOLUTION [Concomitant]
  10. FUROSEMIDE 20 MG TABLET [Concomitant]
  11. NAMENDA [Concomitant]
  12. RISPERIDONE 0.25 MG TABLET [Concomitant]
  13. SIMVASTATIN 20 MG TABLET [Concomitant]
  14. TRAVATAN Z 0.004% SOLUTION [Concomitant]

REACTIONS (1)
  - Angioedema [None]
